FAERS Safety Report 9992532 (Version 1)
Quarter: 2014Q1

REPORT INFORMATION
  Report Type: Spontaneous
  Country: US (occurrence: US)
  Receive Date: 20140310
  Receipt Date: 20140310
  Transmission Date: 20141002
  Serious: No
  Sender: FDA-Public Use
  Company Number: US-JNJFOC-20140217611

PATIENT
  Sex: Male
  Weight: 90.72 kg

DRUGS (9)
  1. SANDOZ FENTANYL TRANSDERMAL SYSTEM [Suspect]
     Indication: BACK PAIN
     Route: 062
     Dates: start: 201210
  2. GABAPENTIN [Concomitant]
     Indication: PAIN
     Route: 048
     Dates: start: 2012
  3. PREZISTA [Concomitant]
     Indication: HIV INFECTION
     Route: 048
     Dates: start: 2010
  4. TRUVADA [Concomitant]
     Indication: HIV INFECTION
     Route: 048
     Dates: start: 2010
  5. ZANAFLEX [Concomitant]
     Indication: HIV INFECTION
     Route: 048
     Dates: start: 2010
  6. SELZENTRY [Concomitant]
     Indication: HIV INFECTION
     Route: 048
     Dates: start: 2010
  7. NORVIR [Concomitant]
     Indication: HIV INFECTION
     Route: 048
     Dates: start: 2010
  8. LORAZEPAM [Concomitant]
     Indication: MENTAL DISORDER
     Route: 048
     Dates: start: 2013
  9. VENLAFAXINE [Concomitant]
     Indication: MENTAL DISORDER
     Route: 048
     Dates: start: 1999

REACTIONS (5)
  - Drug ineffective [Not Recovered/Not Resolved]
  - Product adhesion issue [Unknown]
  - Wrong technique in drug usage process [Not Recovered/Not Resolved]
  - Wrong technique in drug usage process [Not Recovered/Not Resolved]
  - Drug administered at inappropriate site [Not Recovered/Not Resolved]
